FAERS Safety Report 5023189-2 (Version None)
Quarter: 2006Q2

REPORT INFORMATION
  Report Type: 
  Country: None (occurrence: None)
  Receive Date: 20060606
  Receipt Date: 20060524
  Transmission Date: 20061013
  Serious: Yes (Other)
  Sender: FDA-Public Use
  Company Number: 2006BI007588

PATIENT
  Age: 52 Year
  Sex: Male
  Weight: 122.4712 kg

DRUGS (5)
  1. AVONEX [Suspect]
     Indication: MULTIPLE SCLEROSIS
     Dosage: 30 UG;QW;IM
     Route: 030
     Dates: start: 20030801, end: 20060401
  2. VYTORIN [Concomitant]
  3. GLUCOPHAGE [Concomitant]
  4. ACTOS [Concomitant]
  5. ASPIRIN [Concomitant]

REACTIONS (8)
  - ANAEMIA [None]
  - DEPRESSION [None]
  - FATIGUE [None]
  - HEART RATE IRREGULAR [None]
  - HODGKIN'S DISEASE [None]
  - PROCEDURAL COMPLICATION [None]
  - URTICARIA [None]
  - WHITE BLOOD CELL COUNT DECREASED [None]
